FAERS Safety Report 6653799-8 (Version None)
Quarter: 2010Q1

REPORT INFORMATION
  Report Type: 
  Country: None (occurrence: None)
  Receive Date: 20100326
  Receipt Date: 20100325
  Transmission Date: 20100710
  Serious: Yes (Hospitalization)
  Sender: FDA-Public Use
  Company Number: A0851854A

PATIENT
  Age: 52 Year
  Sex: Male
  Weight: 113.6 kg

DRUGS (5)
  1. AVANDIA [Suspect]
     Indication: DIABETES MELLITUS
     Dosage: 8MG TWICE PER DAY
     Route: 048
     Dates: start: 20050801, end: 20070725
  2. LISINOPRIL [Concomitant]
  3. SIMVASTATIN [Concomitant]
  4. METFORMIN HYDROCHLORIDE [Concomitant]
  5. TOPROL-XL [Concomitant]

REACTIONS (1)
  - MYOCARDIAL INFARCTION [None]
